FAERS Safety Report 7549324-X (Version None)
Quarter: 2011Q2

REPORT INFORMATION
  Report Type: 
  Country: None (occurrence: None)
  Receive Date: 20110615
  Receipt Date: 20030318
  Transmission Date: 20111010
  Serious: Yes (Hospitalization)
  Sender: FDA-Public Use
  Company Number: PHHO2003VE03636

PATIENT
  Sex: Male

DRUGS (1)
  1. DIOVAN + ESIDREX [Suspect]
     Indication: HYPERTENSION
     Route: 048

REACTIONS (2)
  - CARDIAC FAILURE [None]
  - RESPIRATORY TRACT INFECTION [None]
